FAERS Safety Report 5963573-3 (Version None)
Quarter: 2008Q4

REPORT INFORMATION
  Report Type: 
  Country: None (occurrence: None)
  Receive Date: 20081124
  Receipt Date: 20081114
  Transmission Date: 20090506
  Serious: Yes (Hospitalization)
  Sender: FDA-Public Use
  Company Number: JP-ASTRAZENECA-2008AP08434

PATIENT
  Age: 23098 Day
  Sex: Male
  Weight: 46 kg

DRUGS (6)
  1. XYLOCAINE VISCOUS [Suspect]
     Indication: LOCAL ANAESTHESIA
     Route: 048
     Dates: start: 20081027, end: 20081027
  2. XYLOCAINE [Suspect]
     Indication: LOCAL ANAESTHESIA
     Dosage: SPRAYED 5 OR 6 TIMES
     Route: 049
     Dates: start: 20081027, end: 20081027
  3. LASIX [Concomitant]
     Route: 048
     Dates: start: 20040201
  4. ALDACTONE [Concomitant]
     Route: 048
     Dates: start: 20040201
  5. HAJIME [Concomitant]
     Route: 048
     Dates: start: 20040201
  6. FAMOTIDINE [Concomitant]
     Route: 048
     Dates: start: 20040201

REACTIONS (1)
  - DRUG TOXICITY [None]
